FAERS Safety Report 7391456-3 (Version None)
Quarter: 2011Q2

REPORT INFORMATION
  Report Type: 
  Country: None (occurrence: None)
  Receive Date: 20110404
  Receipt Date: 20091220
  Transmission Date: 20111010
  Serious: Yes (Death, Hospitalization, Other)
  Sender: FDA-Public Use
  Company Number: US-BAYER-200943165NA

PATIENT
  Sex: Female
  Weight: 82.54 kg

DRUGS (15)
  1. ALTACE [Concomitant]
     Dosage: 5 MG, UNK
     Route: 048
     Dates: start: 20060101
  2. HEPARIN SODIUM [Concomitant]
     Dosage: IV DRIP AFTER 12,000U BOLUS X2
     Route: 042
     Dates: start: 20060120, end: 20060120
  3. METOPROLOL [Concomitant]
     Dosage: 50 MG, UNK
     Route: 048
     Dates: start: 20060101
  4. LASIX [Concomitant]
     Dosage: 40MG X2
     Route: 042
     Dates: start: 20060120, end: 20060120
  5. IMDUR [Concomitant]
     Dosage: 30 MG, UNK
     Route: 048
     Dates: start: 20060101
  6. LIDOCAINE [Concomitant]
     Dosage: 100 MG, UNK
     Route: 042
     Dates: start: 20060120, end: 20060120
  7. PHENYLEPHRINE HCL [Concomitant]
  8. VAPONEFRIN [Concomitant]
  9. ACETYLSALICYLIC ACID SRT [Concomitant]
     Dosage: 81 MG, UNK
     Route: 048
     Dates: start: 20060101
  10. NITROGLYCERIN [Concomitant]
     Dosage: 0.4 MG, UNK
     Route: 060
     Dates: start: 20060101
  11. CORDARONE [Concomitant]
  12. TRASYLOL [Suspect]
     Indication: CORONARY ARTERY BYPASS
     Dosage: 200 ML, UNK
     Route: 042
     Dates: start: 20060120, end: 20060120
  13. VERSED [Concomitant]
     Dosage: 8 MG, UNK
     Route: 042
     Dates: start: 20060120, end: 20060120
  14. PROTAMINE SULFATE [Concomitant]
     Dosage: 200 MG, UNK
     Route: 042
     Dates: start: 20060120, end: 20060120
  15. GENTAMICIN [Concomitant]
     Dosage: 100 MG, UNK
     Route: 042
     Dates: start: 20060120, end: 20060120

REACTIONS (8)
  - ANXIETY [None]
  - INJURY [None]
  - PAIN [None]
  - UNEVALUABLE EVENT [None]
  - DEPRESSION [None]
  - ANHEDONIA [None]
  - RENAL FAILURE [None]
  - FEAR [None]
